FAERS Safety Report 7801171-7 (Version None)
Quarter: 2011Q4

REPORT INFORMATION
  Report Type: 
  Country: None (occurrence: None)
  Receive Date: 20111007
  Receipt Date: 20110929
  Transmission Date: 20120403
  Serious: No
  Sender: FDA-Public Use
  Company Number: US-BIOGENIDEC-2011BI037644

PATIENT
  Sex: Female

DRUGS (5)
  1. COPAXONE [Concomitant]
  2. TYSABRI [Suspect]
     Route: 042
     Dates: start: 20080523, end: 20090410
  3. AVONEX [Concomitant]
     Indication: MULTIPLE SCLEROSIS
     Route: 030
  4. TYSABRI [Suspect]
     Route: 042
     Dates: start: 20071002, end: 20071031
  5. TYSABRI [Suspect]
     Indication: MULTIPLE SCLEROSIS
     Route: 042
     Dates: start: 20110428

REACTIONS (2)
  - GAIT DISTURBANCE [None]
  - NEUROPATHY PERIPHERAL [None]
